FAERS Safety Report 21360819 (Version 1)
Quarter: 2022Q3

REPORT INFORMATION
  Report Type: Spontaneous
  Country: US (occurrence: US)
  Receive Date: 20220921
  Receipt Date: 20220921
  Transmission Date: 20221027
  Serious: Yes (Hospitalization, Other)
  Sender: FDA-Public Use
  Company Number: US-INCYTE CORPORATION-2022IN009015

PATIENT

DRUGS (3)
  1. JAKAFI [Suspect]
     Active Substance: RUXOLITINIB
     Dosage: UNK
     Route: 048
  2. PACRITINIB [Concomitant]
     Active Substance: PACRITINIB
     Indication: Product used for unknown indication
     Dosage: UNK
     Route: 065
  3. INREBIC [Concomitant]
     Active Substance: FEDRATINIB HYDROCHLORIDE
     Indication: Product used for unknown indication
     Dosage: UNK
     Route: 065

REACTIONS (9)
  - Pneumonia [Unknown]
  - Pyrexia [Unknown]
  - Dyspepsia [Unknown]
  - Pain [Unknown]
  - Night sweats [Unknown]
  - Dysgeusia [Unknown]
  - Decreased activity [Recovering/Resolving]
  - Eating disorder [Recovering/Resolving]
  - Fluid intake reduced [Unknown]

NARRATIVE: CASE EVENT DATE: 20220101
